FAERS Safety Report 14031119 (Version 2)
Quarter: 2017Q4

REPORT INFORMATION
  Report Type: Spontaneous
  Country: US (occurrence: US)
  Receive Date: 20171002
  Receipt Date: 20171108
  Transmission Date: 20180321
  Serious: No
  Sender: FDA-Public Use
  Company Number: US-VIIV HEALTHCARE LIMITED-US2017GSK150896

PATIENT
  Age: 44 Year
  Weight: 81.63 kg

DRUGS (1)
  1. TRIUMEQ [Suspect]
     Active Substance: ABACAVIR SULFATE\DOLUTEGRAVIR SODIUM\LAMIVUDINE
     Indication: HIV INFECTION
     Dosage: UNK UNK, 1D
     Route: 048
     Dates: start: 201709, end: 201709

REACTIONS (13)
  - Rash [Recovering/Resolving]
  - Abdominal pain [Recovering/Resolving]
  - Urticaria [Recovering/Resolving]
  - Vomiting [Recovering/Resolving]
  - Intentional dose omission [Recovering/Resolving]
  - Implant site extravasation [Recovering/Resolving]
  - Eye pain [Recovering/Resolving]
  - Wheezing [Recovering/Resolving]
  - Hypersensitivity [Recovering/Resolving]
  - Nausea [Recovering/Resolving]
  - Surgery [Recovering/Resolving]
  - Pruritus generalised [Recovering/Resolving]
  - Diarrhoea [Recovering/Resolving]

NARRATIVE: CASE EVENT DATE: 20170918
